FAERS Safety Report 23179508 (Version 1)
Quarter: 2023Q4

REPORT INFORMATION
  Report Type: Spontaneous
  Country: DE (occurrence: DE)
  Receive Date: 20231114
  Receipt Date: 20231114
  Transmission Date: 20240110
  Serious: Yes (Death, Hospitalization, Other)
  Sender: FDA-Public Use
  Company Number: DE-ROCHE-1344251

PATIENT
  Sex: Female

DRUGS (5)
  1. LEFLUNOMIDE [Suspect]
     Active Substance: LEFLUNOMIDE
     Indication: Rheumatoid arthritis
     Dosage: 20 MILLIGRAM
     Route: 065
     Dates: end: 2010
  2. ADALIMUMAB [Suspect]
     Active Substance: ADALIMUMAB\ISOPROPYL ALCOHOL
     Indication: Rheumatoid arthritis
     Dosage: UNK
     Route: 065
  3. ETANERCEPT [Suspect]
     Active Substance: ETANERCEPT
     Indication: Rheumatoid arthritis
     Dosage: 50 MILLIGRAM (MOST RECENT DOSE RECEIVED ON /APR/2011)
     Route: 065
     Dates: start: 201012
  4. MABTHERA [Suspect]
     Active Substance: RITUXIMAB
     Indication: Rheumatoid arthritis
     Dosage: VISIT DATE: T5 12/DEC/2011 (RITUXIMAB DATE: /OCT/2011); T6 04/JUN/2012 (RITUXIMAB DATE: /APR/2012);
     Route: 065
     Dates: start: 20111011
  5. TOCILIZUMAB [Suspect]
     Active Substance: TOCILIZUMAB
     Indication: Rheumatoid arthritis
     Dosage: 600 MILLIGRAM (MOST RECENT DOSE RECEIVED ON /NOV/2010.)
     Route: 065
     Dates: start: 201006

REACTIONS (3)
  - Peritonitis [Fatal]
  - Diverticulitis intestinal perforated [Fatal]
  - Osteoarthritis [Recovered/Resolved]

NARRATIVE: CASE EVENT DATE: 20190713
